APPROVED DRUG PRODUCT: VASOPRESSIN
Active Ingredient: VASOPRESSIN
Strength: 20UNITS/ML (20UNITS/ML)
Dosage Form/Route: SOLUTION;INTRAVENOUS
Application: A211538 | Product #001 | TE Code: AP
Applicant: EAGLE PHARMACEUTICALS INC
Approved: Dec 15, 2021 | RLD: No | RS: No | Type: RX